FAERS Safety Report 13112910 (Version 2)
Quarter: 2017Q1

REPORT INFORMATION
  Report Type: Spontaneous
  Country: ES (occurrence: ES)
  Receive Date: 20170113
  Receipt Date: 20170204
  Transmission Date: 20170428
  Serious: Yes (Hospitalization, Other)
  Sender: FDA-Public Use
  Company Number: PHHY2017ES004305

PATIENT
  Age: 69 Year
  Sex: Female

DRUGS (1)
  1. GILENYA [Suspect]
     Active Substance: FINGOLIMOD HYDROCHLORIDE
     Indication: MULTIPLE SCLEROSIS
     Dosage: UNK
     Route: 065
     Dates: start: 20120315, end: 20161212

REACTIONS (4)
  - Abdominal pain [Unknown]
  - Metastases to liver [Unknown]
  - Constipation [Unknown]
  - Colon cancer [Unknown]

NARRATIVE: CASE EVENT DATE: 20161205
